FAERS Safety Report 22745906 (Version 19)
Quarter: 2025Q4

REPORT INFORMATION
  Report Type: Report from Study
  Country: SA (occurrence: SA)
  Receive Date: 20230725
  Receipt Date: 20251212
  Transmission Date: 20260117
  Serious: Yes (Other)
  Sender: ROCHE
  Company Number: LB-ROCHE-3294437

PATIENT
  Age: 5 Year
  Sex: Female
  Weight: 13.3 kg

DRUGS (11)
  1. EVRYSDI [Suspect]
     Active Substance: RISDIPLAM
     Indication: Spinal muscular atrophy
     Route: 048
     Dates: start: 20230220
  2. EVRYSDI [Suspect]
     Active Substance: RISDIPLAM
     Route: 048
  3. EVRYSDI [Suspect]
     Active Substance: RISDIPLAM
     Route: 048
  4. EVRYSDI [Suspect]
     Active Substance: RISDIPLAM
     Route: 048
  5. EVRYSDI [Suspect]
     Active Substance: RISDIPLAM
     Route: 048
  6. EVRYSDI [Suspect]
     Active Substance: RISDIPLAM
     Route: 048
  7. EVRYSDI [Suspect]
     Active Substance: RISDIPLAM
     Route: 048
  8. EVRYSDI [Suspect]
     Active Substance: RISDIPLAM
     Route: 048
  9. EVRYSDI [Suspect]
     Active Substance: RISDIPLAM
     Route: 048
  10. EVRYSDI [Suspect]
     Active Substance: RISDIPLAM
     Route: 048
  11. klavox [Concomitant]
     Route: 045

REACTIONS (16)
  - Product administration error [Unknown]
  - Vomiting [Recovered/Resolved]
  - Pyrexia [Recovered/Resolved]
  - Diarrhoea [Not Recovered/Not Resolved]
  - Constipation [Not Recovered/Not Resolved]
  - Oropharyngeal pain [Recovered/Resolved]
  - Nasopharyngitis [Recovered/Resolved]
  - Peripheral swelling [Not Recovered/Not Resolved]
  - Seizure [Recovered/Resolved]
  - Hypoglycaemia [Recovered/Resolved]
  - Feeding disorder [Unknown]
  - Drug monitoring procedure incorrectly performed [Unknown]
  - Product dose omission issue [Unknown]
  - Cough [Recovered/Resolved]
  - Incorrect dose administered [Unknown]
  - Dehydration [Recovered/Resolved]

NARRATIVE: CASE EVENT DATE: 20230221
